FAERS Safety Report 12967773 (Version 1)
Quarter: 2016Q4

REPORT INFORMATION
  Report Type: Spontaneous
  Country: US (occurrence: US)
  Receive Date: 20161123
  Receipt Date: 20161123
  Transmission Date: 20170207
  Serious: No
  Sender: FDA-Public Use
  Company Number: US-PFIZER INC-2016536957

PATIENT
  Age: 40 Year
  Sex: Female

DRUGS (1)
  1. LYRICA [Suspect]
     Active Substance: PREGABALIN
     Dosage: 400 MG, UNK

REACTIONS (4)
  - Feeling abnormal [Unknown]
  - Muscle spasms [Unknown]
  - Chest pain [Unknown]
  - Blood pressure increased [Unknown]
